FAERS Safety Report 12180834 (Version 1)
Quarter: 2016Q1

REPORT INFORMATION
  Report Type: Report from Study
  Country: NL (occurrence: NL)
  Receive Date: 20160315
  Receipt Date: 20160315
  Transmission Date: 20160526
  Serious: Yes (Other)
  Sender: FDA-Public Use
  Company Number: NL-AMGEN-NLDSL2016030646

PATIENT
  Age: 46 Year
  Sex: Female

DRUGS (10)
  1. XGEVA [Suspect]
     Active Substance: DENOSUMAB
     Indication: PRODUCT USED FOR UNKNOWN INDICATION
     Dosage: 120 MG (1.70 ML), Q4WK
     Route: 058
     Dates: start: 20130201
  2. TAMOXIFEN [Concomitant]
     Active Substance: TAMOXIFEN
  3. VESICARE [Concomitant]
     Active Substance: SOLIFENACIN SUCCINATE
     Dosage: 10 MG, QD
     Route: 048
  4. ERIBULIN [Concomitant]
     Active Substance: ERIBULIN
  5. VINORELBINE [Concomitant]
     Active Substance: VINORELBINE\VINORELBINE TARTRATE
  6. FULVESTRANT [Concomitant]
     Active Substance: FULVESTRANT
     Dosage: 250 MG, Q2WK
  7. DALTEPARIN [Concomitant]
     Active Substance: DALTEPARIN
     Dosage: 0.2 ML (2500IE = 0.2ML), QD
  8. CALCIUM CARBONATE AND VITAMIN D [Concomitant]
     Dosage: 2.5G/880IE (1000 MG CA) UNK UNK, QD
  9. PACLITAXEL. [Concomitant]
     Active Substance: PACLITAXEL
     Dosage: UNK UNK, QD
  10. MUPIROCINE [Concomitant]
     Dosage: 20 MG, QD

REACTIONS (13)
  - Peritonitis bacterial [Unknown]
  - Traumatic liver injury [Unknown]
  - Ascites [Not Recovered/Not Resolved]
  - Metastases to bone [Unknown]
  - Pseudomonas infection [Unknown]
  - Pleural effusion [Unknown]
  - Neuropathy peripheral [Unknown]
  - Metastases to lung [Unknown]
  - Eating disorder [Unknown]
  - Nausea [Unknown]
  - Neutropenia [Unknown]
  - Traumatic lung injury [Unknown]
  - Vitamin D deficiency [Unknown]

NARRATIVE: CASE EVENT DATE: 20140401
